FAERS Safety Report 8457041-7 (Version None)
Quarter: 2012Q2

REPORT INFORMATION
  Report Type: 
  Country: None (occurrence: None)
  Receive Date: 20120621
  Receipt Date: 20120608
  Transmission Date: 20120825
  Serious: No
  Sender: FDA-Public Use
  Company Number: US-ASTRAZENECA-2012SE38750

PATIENT
  Age: 79 Year
  Sex: Female
  Weight: 72.6 kg

DRUGS (4)
  1. SYNTHROID [Concomitant]
  2. SPIRIVA [Concomitant]
     Indication: ASTHMA
  3. SYMBICORT [Suspect]
     Indication: BRONCHITIS
     Dosage: 80/4.5MCG, UKNOWN
     Route: 055
     Dates: start: 20120521
  4. SIMVASTATIN [Concomitant]
     Indication: BLOOD CHOLESTEROL ABNORMAL

REACTIONS (3)
  - OFF LABEL USE [None]
  - APHONIA [None]
  - THROAT IRRITATION [None]
